FAERS Safety Report 8953352 (Version 1)
Quarter: 2012Q4

REPORT INFORMATION
  Report Type: 
  Country: US (occurrence: US)
  Receive Date: 20121206
  Receipt Date: 20121206
  Transmission Date: 20130627
  Serious: No
  Sender: FDA-Public Use
  Company Number: US-PFIZER INC-2012300261

PATIENT
  Sex: Female

DRUGS (2)
  1. TOVIAZ [Suspect]
     Dosage: 8 mg, daily
  2. TOVIAZ [Suspect]
     Dosage: 8 mg, 2x/day

REACTIONS (1)
  - Drug ineffective [Unknown]
